FAERS Safety Report 21333219 (Version 2)
Quarter: 2022Q4

REPORT INFORMATION
  Report Type: Spontaneous
  Country: JP (occurrence: JP)
  Receive Date: 20220914
  Receipt Date: 20221026
  Transmission Date: 20230113
  Serious: Yes (Hospitalization, Other)
  Sender: FDA-Public Use
  Company Number: JP-MSD-M2022-36118

PATIENT
  Age: 75 Year
  Sex: Female

DRUGS (3)
  1. KEYTRUDA [Suspect]
     Active Substance: PEMBROLIZUMAB
     Indication: Triple negative breast cancer
     Dosage: 200 MILLIGRAM, Q3W
     Route: 041
     Dates: start: 20220816, end: 20220816
  2. GEMCITABINE HYDROCHLORIDE [Suspect]
     Active Substance: GEMCITABINE HYDROCHLORIDE
     Indication: Triple negative breast cancer
     Dosage: 1000 MILLIGRAM/SQ. METER, ONE COURSE IS 21 DAYS WITH ADMINISTRATION ON THE FIRST DAY AND THE EIGHTH
     Route: 041
     Dates: start: 20220816, end: 20220823
  3. CARBOPLATIN [Suspect]
     Active Substance: CARBOPLATIN
     Indication: Triple negative breast cancer
     Dosage: AUC2, ONE COURSE IS 21 DAYS WITH ADMINISTRATION ON THE FIRST DAY AND THE EIGHTH DAY
     Route: 041
     Dates: start: 20220816, end: 20220823

REACTIONS (4)
  - Bacterial myositis [Recovered/Resolved]
  - Febrile neutropenia [Unknown]
  - Anaemia [Recovered/Resolved]
  - Platelet count decreased [Recovered/Resolved]

NARRATIVE: CASE EVENT DATE: 20220823
